FAERS Safety Report 6054113-1 (Version None)
Quarter: 2009Q1

REPORT INFORMATION
  Report Type: 
  Country: None (occurrence: None)
  Receive Date: 20090123
  Receipt Date: 20090123
  Transmission Date: 20090719
  Serious: No
  Sender: FDA-Public Use
  Company Number: None

PATIENT
  Sex: Male
  Weight: 101.6057 kg

DRUGS (1)
  1. NADOLOL [Suspect]
     Indication: MIGRAINE
     Dosage: 40 MG ONCE QD
     Dates: start: 20070401

REACTIONS (3)
  - BLOOD PRESSURE INCREASED [None]
  - MIGRAINE [None]
  - PRODUCT QUALITY ISSUE [None]
